FAERS Safety Report 13935785 (Version 1)
Quarter: 2017Q3

REPORT INFORMATION
  Report Type: Spontaneous
  Country: US (occurrence: US)
  Receive Date: 20170905
  Receipt Date: 20170905
  Transmission Date: 20171127
  Serious: Yes (Hospitalization, Other)
  Sender: FDA-Public Use
  Company Number: US-WEST-WARD PHARMACEUTICALS CORP.-US-H14001-17-03247

PATIENT
  Age: 60 Year
  Sex: Male

DRUGS (1)
  1. AZATHIOPRINE. [Suspect]
     Active Substance: AZATHIOPRINE
     Indication: GLOMERULONEPHRITIS RAPIDLY PROGRESSIVE
     Route: 065

REACTIONS (3)
  - Lung infiltration [Recovered/Resolved]
  - Pleural effusion [Recovered/Resolved]
  - Traumatic lung injury [Recovered/Resolved]
